FAERS Safety Report 4954718-2 (Version None)
Quarter: 2006Q1

REPORT INFORMATION
  Report Type: 
  Country: None (occurrence: None)
  Receive Date: 20060131
  Receipt Date: 20050803
  Transmission Date: 20060701
  Serious: Yes (Death)
  Sender: FDA-Public Use
  Company Number: 05P-163-0303941-00

PATIENT
  Age: 20 Year
  Sex: Male

DRUGS (1)
  1. OMNICEF [Suspect]
     Indication: BRONCHITIS VIRAL
     Dosage: 300 MG, 2 IN 1 D, PER ORAL
     Route: 048
     Dates: start: 20050512, end: 20050512

REACTIONS (1)
  - DEATH [None]
